FAERS Safety Report 23614203 (Version 1)
Quarter: 2024Q1

REPORT INFORMATION
  Report Type: Spontaneous
  Country: RS (occurrence: RS)
  Receive Date: 20240310
  Receipt Date: 20240310
  Transmission Date: 20240410
  Serious: Yes (Hospitalization, Other)
  Sender: FDA-Public Use
  Company Number: RS-Gedeon Richter Plc.-2024_GR_002220

PATIENT
  Age: 44 Year
  Sex: Female

DRUGS (1)
  1. LEVONORGESTREL [Suspect]
     Active Substance: LEVONORGESTREL
     Indication: Product used for unknown indication
     Dosage: TIME INTERVAL: AS NECESSARY: FORM STRENGTH WAS 52 MILLIGRAM SINGLE, AT AN INITIAL RELEASE RATE OF...
     Route: 015
     Dates: start: 20220429

REACTIONS (5)
  - Pelvic congestion [Not Recovered/Not Resolved]
  - Device breakage [Unknown]
  - Uterine perforation [Not Recovered/Not Resolved]
  - Device dislocation [Unknown]
  - Uterine adhesions [Unknown]

NARRATIVE: CASE EVENT DATE: 20231030
